FAERS Safety Report 18991853 (Version 1)
Quarter: 2021Q1

REPORT INFORMATION
  Report Type: Spontaneous
  Country: US (occurrence: US)
  Receive Date: 20210310
  Receipt Date: 20210310
  Transmission Date: 20210420
  Serious: No
  Sender: FDA-Public Use
  Company Number: US-PERRIGO-21US002396

PATIENT
  Age: 66 Year
  Sex: Female
  Weight: 79.37 kg

DRUGS (3)
  1. ALBUTEROL SULFATE. [Suspect]
     Active Substance: ALBUTEROL SULFATE
     Dosage: UNKNOWN, QID
     Route: 055
     Dates: start: 202004, end: 2021
  2. ALBUTEROL SULFATE. [Suspect]
     Active Substance: ALBUTEROL SULFATE
     Dosage: UNKNOWN, QID
     Route: 055
     Dates: start: 202004, end: 2021
  3. ALBUTEROL SULFATE. [Suspect]
     Active Substance: ALBUTEROL SULFATE
     Indication: ASTHMA
     Dosage: UNKNOWN, QID
     Route: 055
     Dates: start: 202004, end: 2021

REACTIONS (5)
  - Asthma [Recovered/Resolved]
  - Device delivery system issue [Unknown]
  - Emotional distress [Recovered/Resolved]
  - Paraesthesia [Recovered/Resolved]
  - Visual impairment [Recovered/Resolved]

NARRATIVE: CASE EVENT DATE: 202004
